FAERS Safety Report 8166192-6 (Version None)
Quarter: 2012Q1

REPORT INFORMATION
  Report Type: 
  Country: None (occurrence: None)
  Receive Date: 20120223
  Receipt Date: 20120223
  Transmission Date: 20120608
  Serious: Yes (Death)
  Sender: FDA-Public Use
  Company Number: None

PATIENT
  Age: 19 Year
  Sex: Male
  Weight: 72.5755 kg

DRUGS (2)
  1. REGLAN [Suspect]
     Indication: GASTRIC ULCER
     Dosage: 5 MG 4 TIMES DAILY P.O.
     Route: 048
     Dates: start: 20080613, end: 20080619
  2. REGLAN [Suspect]
     Indication: GASTROOESOPHAGEAL REFLUX DISEASE
     Dosage: 5 MG 4 TIMES DAILY P.O.
     Route: 048
     Dates: start: 20080613, end: 20080619

REACTIONS (8)
  - DEPRESSION [None]
  - COMPLETED SUICIDE [None]
  - AGGRESSION [None]
  - MEMORY IMPAIRMENT [None]
  - ANXIETY [None]
  - DYSKINESIA [None]
  - MENTAL STATUS CHANGES [None]
  - FEELING ABNORMAL [None]
